FAERS Safety Report 7030169-4 (Version None)
Quarter: 2010Q4

REPORT INFORMATION
  Report Type: 
  Country: None (occurrence: None)
  Receive Date: 20101006
  Receipt Date: 20100930
  Transmission Date: 20110411
  Serious: Yes (Hospitalization)
  Sender: FDA-Public Use
  Company Number: PT-TEVA-236361ISR

PATIENT
  Age: 47 Year
  Sex: Female
  Weight: 60 kg

DRUGS (9)
  1. OXALIPLATIN [Suspect]
     Indication: COLON NEOPLASM
     Route: 042
     Dates: start: 20100215, end: 20100510
  2. OXALIPLATIN [Suspect]
     Route: 042
  3. OXALIPLATIN [Suspect]
     Dates: end: 20100510
  4. CETUXIMAB [Concomitant]
     Indication: COLON NEOPLASM
     Route: 042
     Dates: start: 20100215
  5. FLUOROURACIL [Concomitant]
     Indication: COLON NEOPLASM
     Route: 042
     Dates: start: 20100215
  6. CALCIUM FOLINATE [Concomitant]
     Indication: COLON NEOPLASM
     Route: 042
     Dates: start: 20100215
  7. SERTRALINE HYDROCHLORIDE [Concomitant]
     Indication: DEPRESSION
     Route: 048
  8. ONDANSETRON [Concomitant]
     Indication: PREMEDICATION
     Route: 042
     Dates: start: 20100215
  9. DEXAMETHASONE [Concomitant]
     Indication: PREMEDICATION
     Route: 042
     Dates: start: 20100215

REACTIONS (5)
  - CHOLINERGIC SYNDROME [None]
  - ERYTHEMA [None]
  - FLUSHING [None]
  - NEUTROPENIA [None]
  - PRURITUS [None]
